FAERS Safety Report 5390769-4 (Version None)
Quarter: 2007Q3

REPORT INFORMATION
  Report Type: 
  Country: None (occurrence: None)
  Receive Date: 20070716
  Receipt Date: 20070706
  Transmission Date: 20080115
  Serious: Yes (Hospitalization, Other)
  Sender: FDA-Public Use
  Company Number: CHNY2007GB02478

PATIENT
  Age: 64 Year
  Sex: Female

DRUGS (11)
  1. NICOTINE [Suspect]
     Indication: SMOKING CESSATION THERAPY
     Dosage: 4 MCG, ONCE/SINGLE, ORAL
     Route: 048
     Dates: start: 20060209, end: 20060209
  2. BORAX(SODIUM BORATE) [Suspect]
  3. VIDARABINE(VIDARABINE) [Suspect]
  4. ACETYLSALICYLIC ACID SRT [Concomitant]
  5. AMLODIPINE [Concomitant]
  6. LEVOTHYROXINE SODIUM [Concomitant]
  7. LORAZEPAM [Concomitant]
  8. QUININE SULFATE [Concomitant]
  9. SALBUTAMOL SULFATE (SALBUTAMOL SULFATE) [Concomitant]
  10. SERETIDE ^ALLEN + HANBURYS LTD^ (FLUTICASONE PROPIONATE, SALMETEROL XI [Concomitant]
  11. TRAMADOL HCL [Concomitant]

REACTIONS (15)
  - AFFECT LABILITY [None]
  - BLOOD PRESSURE DECREASED [None]
  - DEPRESSION [None]
  - DISTURBANCE IN SOCIAL BEHAVIOUR [None]
  - EMOTIONAL DISORDER [None]
  - FATIGUE [None]
  - LIMB DISCOMFORT [None]
  - MALAISE [None]
  - MOBILITY DECREASED [None]
  - NAUSEA [None]
  - PULSE ABSENT [None]
  - RASH GENERALISED [None]
  - SKIN INFLAMMATION [None]
  - TOXIC SKIN ERUPTION [None]
  - URINARY TRACT INFECTION [None]
